FAERS Safety Report 6607213-9 (Version None)
Quarter: 2010Q1

REPORT INFORMATION
  Report Type: 
  Country: None (occurrence: None)
  Receive Date: 20100223
  Receipt Date: 20100223
  Transmission Date: 20100710
  Serious: No
  Sender: FDA-Public Use
  Company Number: None

PATIENT
  Age: 62 Year
  Sex: Female
  Weight: 70.7 kg

DRUGS (1)
  1. COUMADIN [Suspect]
     Indication: ATRIAL FIBRILLATION
     Dosage: AS DIRECTED
     Dates: start: 20060601, end: 20061201

REACTIONS (3)
  - ABDOMINAL DISCOMFORT [None]
  - BACK PAIN [None]
  - HEADACHE [None]
